FAERS Safety Report 7085459-6 (Version None)
Quarter: 2010Q4

REPORT INFORMATION
  Report Type: 
  Country: None (occurrence: None)
  Receive Date: 20101005
  Receipt Date: 20100122
  Transmission Date: 20110411
  Serious: Yes (Other)
  Sender: FDA-Public Use
  Company Number: US-WYE-H13142410

PATIENT
  Age: 67 Year
  Sex: Male
  Weight: 87.4 kg

DRUGS (13)
  1. RAPAMUNE [Suspect]
     Indication: PROPHYLAXIS AGAINST TRANSPLANT REJECTION
     Dosage: VARIED DOSE WITH HIGHEST DOSE AT 3 MG, ORAL
     Route: 048
     Dates: start: 20080501, end: 20091101
  2. CALCIUM (CALCIUM) [Concomitant]
  3. ASPIRIN [Concomitant]
  4. OMEPRAZOLE [Concomitant]
  5. COZAAR [Concomitant]
  6. SYNTHROID [Concomitant]
  7. LIPITOR [Concomitant]
  8. .. [Concomitant]
  9. PLAVIX [Concomitant]
  10. PROGRAF [Concomitant]
  11. PREDNISONE TAB [Concomitant]
  12. TESTOSTERONE [Concomitant]
  13. GLYBURIDE [Concomitant]

REACTIONS (2)
  - OEDEMA PERIPHERAL [None]
  - SQUAMOUS CELL CARCINOMA [None]
